FAERS Safety Report 6698639-6 (Version None)
Quarter: 2010Q2

REPORT INFORMATION
  Report Type: 
  Country: None (occurrence: None)
  Receive Date: 20100427
  Receipt Date: 20100413
  Transmission Date: 20101027
  Serious: Yes (Hospitalization, Other)
  Sender: FDA-Public Use
  Company Number: PHHY2010US23621

PATIENT
  Sex: Female

DRUGS (1)
  1. EXTAVIA [Suspect]
     Indication: MULTIPLE SCLEROSIS
     Dosage: 0.25 ML, QOD
     Route: 058
     Dates: start: 20100408

REACTIONS (5)
  - BALANCE DISORDER [None]
  - DIZZINESS [None]
  - MULTIPLE SCLEROSIS [None]
  - VISION BLURRED [None]
  - VISUAL IMPAIRMENT [None]
